FAERS Safety Report 16237516 (Version 1)
Quarter: 2019Q2

REPORT INFORMATION
  Report Type: Spontaneous
  Country: US (occurrence: US)
  Receive Date: 20190425
  Receipt Date: 20190425
  Transmission Date: 20190711
  Serious: Yes (Other)
  Sender: FDA-Public Use
  Company Number: US-ORION CORPORATION ORION PHARMA-ENT 2019-0025

PATIENT
  Sex: Male
  Weight: 70.3 kg

DRUGS (18)
  1. HYTRIN [Suspect]
     Active Substance: TERAZOSIN HYDROCHLORIDE
     Indication: PRODUCT USED FOR UNKNOWN INDICATION
     Dosage: STRENGTH: 10 MG
     Route: 065
     Dates: end: 201811
  2. FLOMAX [Concomitant]
     Active Substance: TAMSULOSIN HYDROCHLORIDE
     Dosage: STRENGTH: 0.4 MG
     Route: 065
  3. FINASTERIDE. [Concomitant]
     Active Substance: FINASTERIDE
     Dosage: STRENGTH: 5 MG
     Route: 065
  4. ENTACAPONE (TRADE NAME UNKNOWN) [Suspect]
     Active Substance: ENTACAPONE
     Indication: PRODUCT USED FOR UNKNOWN INDICATION
     Dosage: STRENGTH: 200 MG
     Route: 065
  5. AMANTADINE. [Suspect]
     Active Substance: AMANTADINE HYDROCHLORIDE
     Dosage: STRENGTH: 137 MG, AT BED TIME
     Route: 048
     Dates: start: 20180620, end: 201808
  6. AMANTADINE. [Suspect]
     Active Substance: AMANTADINE HYDROCHLORIDE
     Dosage: STRENGTH: 137 MG, AT BED TIME
     Route: 048
     Dates: start: 201811
  7. ASPIRIN. [Concomitant]
     Active Substance: ASPIRIN
     Dosage: STRENGTH: 325 MG
     Route: 065
  8. SINEMET [Concomitant]
     Active Substance: CARBIDOPA\LEVODOPA
     Route: 065
  9. AMANTADINE. [Suspect]
     Active Substance: AMANTADINE HYDROCHLORIDE
     Dosage: STRENGTH: 137 MG, AT BED TIME
     Route: 048
     Dates: start: 201811
  10. AMANTADINE. [Suspect]
     Active Substance: AMANTADINE HYDROCHLORIDE
     Indication: DYSKINESIA
     Dosage: STRENGTH: 137 MG, AT BED TIME
     Route: 048
     Dates: start: 20180613, end: 20180619
  11. HYTRIN [Suspect]
     Active Substance: TERAZOSIN HYDROCHLORIDE
     Dosage: STRENGTH: 10 MG
     Route: 065
     Dates: start: 201811
  12. AMANTADINE. [Suspect]
     Active Substance: AMANTADINE HYDROCHLORIDE
     Dosage: STRENGTH: 137 MG, AT BED TIME
     Route: 048
     Dates: start: 201808, end: 20180912
  13. MELATONIN [Concomitant]
     Active Substance: MELATONIN
     Dosage: STRENGTH: 3 MG
     Route: 065
  14. VITAMIN B12 [Concomitant]
     Active Substance: CYANOCOBALAMIN
     Dosage: STRENGTH: 1000 MCG
     Route: 065
  15. VITAMIN D3 [Concomitant]
     Active Substance: CHOLECALCIFEROL
     Dosage: STRENGTH: 2000 IU
     Route: 065
  16. ALEVE [Concomitant]
     Active Substance: NAPROXEN SODIUM
     Dosage: STRENGTH: 220 MG
     Route: 065
  17. FLONASE [Concomitant]
     Active Substance: FLUTICASONE PROPIONATE
     Dosage: STRENGTH: 50 MCG
     Route: 065
  18. AMANTADINE. [Suspect]
     Active Substance: AMANTADINE HYDROCHLORIDE
     Dosage: STRENGTH: 137 MG, AT BED TIME
     Route: 048
     Dates: start: 20180912, end: 201811

REACTIONS (7)
  - Urinary tract infection [Unknown]
  - Constipation [Recovering/Resolving]
  - Tic [Not Recovered/Not Resolved]
  - Hallucination, visual [Not Recovered/Not Resolved]
  - Urinary retention [Unknown]
  - Dysphemia [Not Recovered/Not Resolved]
  - Dry mouth [Not Recovered/Not Resolved]
